FAERS Safety Report 20087119 (Version 2)
Quarter: 2021Q4

REPORT INFORMATION
  Report Type: Spontaneous
  Country: US (occurrence: US)
  Receive Date: 20211118
  Receipt Date: 20211201
  Transmission Date: 20220303
  Serious: Yes (Other)
  Sender: FDA-Public Use
  Company Number: US-TEVA-2021-US-1977459

PATIENT
  Age: 79 Year
  Sex: Male

DRUGS (8)
  1. METHOTREXATE [Suspect]
     Active Substance: METHOTREXATE
     Indication: Large granular lymphocytosis
     Route: 065
  2. METHOTREXATE [Suspect]
     Active Substance: METHOTREXATE
     Indication: Large granular lymphocytosis
     Route: 065
  3. PREDNISONE [Suspect]
     Active Substance: PREDNISONE
     Indication: Large granular lymphocytosis
     Dosage: 60 MILLIGRAM DAILY; THIS WAS LATER TAPERED OVER 8 WEEKS
     Route: 065
  4. PREDNISONE [Suspect]
     Active Substance: PREDNISONE
     Indication: Large granular lymphocytosis
     Dosage: 40 MILLIGRAM DAILY; A SHORT COURSE WAS GIVEN, LATER TAPERED OVER 14 DAYS
     Route: 065
  5. CYCLOSPORINE [Suspect]
     Active Substance: CYCLOSPORINE
     Indication: Large granular lymphocytosis
     Dosage: 2 MG/KG DAILY; CICLOSPORIN 2 MG/KG DAILY IN DIVIDED DOSES
     Route: 065
  6. TACROLIMUS [Suspect]
     Active Substance: TACROLIMUS
     Indication: Large granular lymphocytosis
     Dosage: 4 MILLIGRAM DAILY; 4 MG DAILY IN DIVIDED DOSES
     Route: 065
  7. EPOETIN ALFA [Suspect]
     Active Substance: ERYTHROPOIETIN
     Indication: Anaemia
     Dosage: 60000 UNITS BIWEEKLY
     Route: 065
  8. VORINOSTAT [Suspect]
     Active Substance: VORINOSTAT
     Indication: Large granular lymphocytosis
     Dosage: 400 MILLIGRAM DAILY;
     Route: 065

REACTIONS (5)
  - Nephropathy toxic [Unknown]
  - Decreased appetite [Unknown]
  - Diarrhoea [Unknown]
  - Fatigue [Unknown]
  - Therapy non-responder [Unknown]
